FAERS Safety Report 7979989-X (Version None)
Quarter: 2011Q4

REPORT INFORMATION
  Report Type: 
  Country: None (occurrence: None)
  Receive Date: 20111214
  Receipt Date: 20111212
  Transmission Date: 20120403
  Serious: Yes (Hospitalization, Other)
  Sender: FDA-Public Use
  Company Number: US-TEVA-313260USA

PATIENT
  Age: 49 Year
  Sex: Male

DRUGS (3)
  1. CLONAZEPAM [Concomitant]
  2. AMLODIPINE [Suspect]
  3. TRAMADOL HCL [Concomitant]

REACTIONS (8)
  - HYPOTENSION [None]
  - RENAL FAILURE ACUTE [None]
  - PULMONARY OEDEMA [None]
  - HYPOXIA [None]
  - RESPIRATORY FAILURE [None]
  - SUICIDE ATTEMPT [None]
  - OVERDOSE [None]
  - BRADYCARDIA [None]
